FAERS Safety Report 18687764 (Version 1)
Quarter: 2020Q4

REPORT INFORMATION
  Report Type: Spontaneous
  Country: FR (occurrence: FR)
  Receive Date: 20201231
  Receipt Date: 20201231
  Transmission Date: 20210114
  Serious: Yes (Hospitalization)
  Sender: FDA-Public Use
  Company Number: FR-B.I. PHARMACEUTICALS,INC./RIDGEFIELD-2020-BI-072739

PATIENT
  Age: 79 Year
  Sex: Male

DRUGS (2)
  1. OFEV [Suspect]
     Active Substance: NINTEDANIB
     Indication: IDIOPATHIC PULMONARY FIBROSIS
     Route: 048
     Dates: start: 2018, end: 202011
  2. TAHOR [Suspect]
     Active Substance: ATORVASTATIN CALCIUM
     Indication: CAROTID ARTERY STENOSIS
     Route: 048
     Dates: start: 202007, end: 20201208

REACTIONS (3)
  - Diarrhoea [Recovered/Resolved]
  - Myalgia [Not Recovered/Not Resolved]
  - Hepatitis cholestatic [Not Recovered/Not Resolved]

NARRATIVE: CASE EVENT DATE: 20201007
